FAERS Safety Report 13045653 (Version 1)
Quarter: 2016Q4

REPORT INFORMATION
  Report Type: Spontaneous
  Country: US (occurrence: US)
  Receive Date: 20161220
  Receipt Date: 20161220
  Transmission Date: 20170207
  Serious: Yes (Other)
  Sender: FDA-Public Use
  Company Number: None

PATIENT
  Age: 58 Year
  Sex: Female
  Weight: 55.84 kg

DRUGS (10)
  1. COQ10-WITH BIO PEVINE [Concomitant]
  2. ANASTROZOLE TABLETS [Suspect]
     Active Substance: ANASTROZOLE
     Indication: BREAST CANCER
     Dosage: 30 TABLETS 1 TABLET BY MOUTH DAILY BY MOUTH
     Route: 048
     Dates: start: 20161120, end: 20161122
  3. TUMERIC [Concomitant]
     Active Substance: TURMERIC
  4. PERJETA [Concomitant]
     Active Substance: PERTUZUMAB
  5. LETROZOLE. [Concomitant]
     Active Substance: LETROZOLE
  6. HEMP OIL [Concomitant]
     Active Substance: CANNABIS SATIVA SEED OIL
  7. TYANOL [Concomitant]
  8. BENADRIL [Concomitant]
  9. HERCEPTIN [Concomitant]
     Active Substance: TRASTUZUMAB
  10. VITAMIN D3 [Concomitant]
     Active Substance: CHOLECALCIFEROL

REACTIONS (8)
  - Chest pain [None]
  - Bone pain [None]
  - Anxiety [None]
  - Headache [None]
  - Pain [None]
  - Oropharyngeal pain [None]
  - Dizziness [None]
  - Dysphonia [None]

NARRATIVE: CASE EVENT DATE: 20161120
